FAERS Safety Report 8317164-X (Version None)
Quarter: 2012Q2

REPORT INFORMATION
  Report Type: 
  Country: None (occurrence: None)
  Receive Date: 20120425
  Receipt Date: 20120416
  Transmission Date: 20120825
  Serious: Yes (Hospitalization)
  Sender: FDA-Public Use
  Company Number: DSM-2012-00415

PATIENT
  Age: 80 Year
  Sex: Female

DRUGS (11)
  1. JANUMET (METFORMIN HYDROCHLORIDE, SITAGLIPTIN PHOSPHATE) (METFORMIN HY [Concomitant]
  2. OPTOVITE B12 (CYANOCOBALAMIN) (CYANOCOBALAMIN) [Concomitant]
  3. OMEPRAZOLE [Concomitant]
  4. NEBIVOLOL HYDROCHLORIDE [Suspect]
     Indication: HYPERTENSION
     Dosage: 5 MG (5 MG, 1 IN 1 D), ORAL
     Route: 048
     Dates: start: 20070101, end: 20120320
  5. LOPID [Concomitant]
  6. LORMETAZEPAM CINFA (LORMETAZEPAM) (LORMETAZEPAM) [Concomitant]
  7. SEVIKAR HCT (TABLET) [Suspect]
     Indication: HYPERTENSION
     Dosage: 40/10/25 MG (1 IN 1 D),ORAL
     Route: 048
     Dates: start: 20120101, end: 20120320
  8. DIGOXIN [Suspect]
     Indication: ATRIAL FIBRILLATION
     Dosage: ORAL
     Route: 048
     Dates: start: 20070101, end: 20120320
  9. PARACETAMOL APOTEX (PARACETAMOL) (PARACETAMOL) [Concomitant]
  10. SINTROM (ACENOCOUMAROL) (ACENOCOUMAROL) [Concomitant]
  11. TARDYFERON (FERROUS SULFATE) (FERROUS SULFATE) [Concomitant]

REACTIONS (8)
  - DRUG INTERACTION [None]
  - DYSPNOEA [None]
  - ASTHENIA [None]
  - BRADYCARDIA [None]
  - ABDOMINAL DISTENSION [None]
  - URINE OUTPUT DECREASED [None]
  - TOXICITY TO VARIOUS AGENTS [None]
  - OEDEMA PERIPHERAL [None]
